FAERS Safety Report 9217390 (Version 2)
Quarter: 2013Q2

REPORT INFORMATION
  Report Type: Report from Study
  Country: DE (occurrence: DE)
  Receive Date: 20130408
  Receipt Date: 20130514
  Transmission Date: 20140414
  Serious: Yes (Hospitalization, Other)
  Sender: FDA-Public Use
  Company Number: DE-ROCHE-1175800

PATIENT
  Age: 86 Year
  Sex: Female
  Weight: 68 kg

DRUGS (7)
  1. RITUXIMAB [Suspect]
     Indication: CHRONIC LYMPHOCYTIC LEUKAEMIA
     Dosage: DOSE: 630 MG
     Route: 042
     Dates: start: 20121213, end: 20121213
  2. BENDAMUSTINE [Suspect]
     Indication: CHRONIC LYMPHOCYTIC LEUKAEMIA
     Route: 042
     Dates: start: 20121214, end: 20121215
  3. BENDAMUSTINE [Suspect]
     Route: 042
     Dates: start: 20121217
  4. PARACETAMOL [Concomitant]
     Indication: PREMEDICATION
     Route: 042
     Dates: start: 20121213
  5. FENISTIL [Concomitant]
     Indication: PREMEDICATION
     Route: 042
     Dates: start: 20121213
  6. GRANISETRON [Concomitant]
     Route: 042
     Dates: start: 20121217, end: 20121218
  7. PREDNISOLON [Concomitant]
     Indication: PREMEDICATION
     Route: 042
     Dates: start: 20121213

REACTIONS (6)
  - Nausea [Recovered/Resolved]
  - General physical health deterioration [Recovered/Resolved]
  - Platelet count decreased [Recovering/Resolving]
  - Leukopenia [Recovering/Resolving]
  - Renal failure acute [Recovered/Resolved]
  - Upper respiratory tract infection [Unknown]
